FAERS Safety Report 5695298-6 (Version None)
Quarter: 2008Q2

REPORT INFORMATION
  Report Type: 
  Country: None (occurrence: None)
  Receive Date: 20080404
  Receipt Date: 20080327
  Transmission Date: 20081010
  Serious: Yes (Other)
  Sender: FDA-Public Use
  Company Number: GB-PFIZER INC-2008028071

PATIENT
  Age: 46 Year
  Sex: Female
  Weight: 70 kg

DRUGS (4)
  1. CHAMPIX [Suspect]
     Indication: SMOKING CESSATION THERAPY
     Route: 048
     Dates: start: 20080110, end: 20080224
  2. ACETYLSALICYLIC ACID SRT [Concomitant]
     Route: 048
  3. ATENOLOL [Concomitant]
     Route: 048
  4. ATORVASTATIN [Concomitant]
     Route: 048

REACTIONS (1)
  - ANGINA PECTORIS [None]
